FAERS Safety Report 18234605 (Version 2)
Quarter: 2021Q2

REPORT INFORMATION
  Report Type: Spontaneous
  Country: ZA (occurrence: ZA)
  Receive Date: 20200904
  Receipt Date: 20210614
  Transmission Date: 20210717
  Serious: Yes (Other)
  Sender: FDA-Public Use
  Company Number: NVSC2020ZA237751

PATIENT
  Age: 73 Year
  Sex: Female

DRUGS (3)
  1. TEGRETOL XR [Suspect]
     Active Substance: CARBAMAZEPINE
     Dosage: 500 MG, QD
     Route: 065
  2. LYRICA [Concomitant]
     Active Substance: PREGABALIN
     Indication: PRODUCT USED FOR UNKNOWN INDICATION
     Dosage: UNK
     Route: 065
  3. TEGRETOL XR [Suspect]
     Active Substance: CARBAMAZEPINE
     Indication: TRIGEMINAL NEURALGIA
     Dosage: 1000 MG, PRN  (3 X 200 MG IN THE MORNING AND 2 X 200 MG IN THE EVENING)
     Route: 048
     Dates: start: 2013

REACTIONS (3)
  - Condition aggravated [Unknown]
  - Gingival pain [Unknown]
  - Trigeminal neuralgia [Unknown]
